FAERS Safety Report 11159210 (Version 1)
Quarter: 2015Q2

REPORT INFORMATION
  Report Type: Spontaneous
  Country: US (occurrence: None)
  Receive Date: 20150527
  Receipt Date: 20150527
  Transmission Date: 20150821
  Serious: Yes (Hospitalization)
  Sender: FDA-Public Use
  Company Number: 1469259

PATIENT
  Age: 7 Year
  Sex: Male

DRUGS (6)
  1. CLOTRIMAZOLE. [Concomitant]
     Active Substance: CLOTRIMAZOLE
  2. BACTRIM [Suspect]
     Active Substance: SULFAMETHOXAZOLE\TRIMETHOPRIM
     Indication: PROPHYLAXIS AGAINST TRANSPLANT REJECTION
     Dosage: M/T/W (8.5 ML, 1 IN 12 HR), ORAL
     Route: 048
  3. NIFEDIPINE. [Concomitant]
     Active Substance: NIFEDIPINE
  4. VALCYTE [Suspect]
     Active Substance: VALGANCICLOVIR HYDROCHLORIDE
     Indication: INFECTION PROPHYLAXIS
     Dosage: 50 MG/ML (15 ML, 1 IN 1 D), ORAL
     Route: 048
     Dates: start: 20140929
  5. CELLCEPT [Suspect]
     Active Substance: MYCOPHENOLATE MOFETIL\MYCOPHENOLATE MOFETIL HYDROCHLORIDE
     Indication: PROPHYLAXIS AGAINST TRANSPLANT REJECTION
     Dosage: 1.4 ML, 1 IN 12 HR), ORAL
     Route: 048
     Dates: start: 20140929
  6. PROGRAF [Concomitant]
     Active Substance: TACROLIMUS\TACROLIMUS ANHYDROUS

REACTIONS (1)
  - Vomiting [None]
